FAERS Safety Report 4801122-3 (Version None)
Quarter: 2005Q4

REPORT INFORMATION
  Report Type: 
  Country: None (occurrence: None)
  Receive Date: 20051011
  Receipt Date: 20050929
  Transmission Date: 20060501
  Serious: Yes (Disabling, Other)
  Sender: FDA-Public Use
  Company Number: GBWYE017829SEP05

PATIENT
  Age: 55 Year
  Sex: Male

DRUGS (1)
  1. PREMARIN [Suspect]
     Dosage: 1 TABLET 1X PER 1 DAY
     Dates: start: 20050825, end: 20050903

REACTIONS (10)
  - ANXIETY [None]
  - DEPRESSION [None]
  - DISORIENTATION [None]
  - DIZZINESS [None]
  - DYSPNOEA [None]
  - MUSCLE TIGHTNESS [None]
  - NAUSEA [None]
  - PALPITATIONS [None]
  - PANIC ATTACK [None]
  - THERAPEUTIC RESPONSE UNEXPECTED WITH DRUG SUBSTITUTION [None]
